FAERS Safety Report 7257189-9 (Version None)
Quarter: 2011Q1

REPORT INFORMATION
  Report Type: 
  Country: None (occurrence: None)
  Receive Date: 20110129
  Receipt Date: 20100623
  Transmission Date: 20110831
  Serious: No
  Sender: FDA-Public Use
  Company Number: US-ABBOTT-10P-163-0654067-00

PATIENT
  Sex: Female
  Weight: 93.524 kg

DRUGS (7)
  1. CELEBREX [Concomitant]
     Indication: PSORIASIS
  2. ESTRADIOL [Concomitant]
     Indication: HORMONE REPLACEMENT THERAPY
  3. AVALIDE [Concomitant]
     Indication: HYPERTENSION
     Route: 048
  4. CITALOPRAM [Concomitant]
     Indication: ANXIETY
     Route: 048
  5. HUMIRA [Suspect]
     Indication: PSORIASIS
     Dosage: 80 MG LOADING DOSE
     Route: 058
     Dates: start: 20100401, end: 20100401
  6. CELEBREX [Concomitant]
     Indication: PSORIATIC ARTHROPATHY
  7. HUMIRA [Suspect]
     Indication: PSORIATIC ARTHROPATHY
     Route: 058
     Dates: start: 20100408

REACTIONS (7)
  - INJECTION SITE ERYTHEMA [None]
  - ARTHROPOD STING [None]
  - PAIN IN EXTREMITY [None]
  - INJECTION SITE SWELLING [None]
  - OEDEMA PERIPHERAL [None]
  - PSORIASIS [None]
  - PRURITUS [None]
